FAERS Safety Report 18021987 (Version 2)
Quarter: 2020Q4

REPORT INFORMATION
  Report Type: Report from Study
  Country: FR (occurrence: FR)
  Receive Date: 20200714
  Receipt Date: 20201005
  Transmission Date: 20210113
  Serious: Yes (Death, Hospitalization)
  Sender: FDA-Public Use
  Company Number: PHHY2019FR145792

PATIENT
  Sex: Male
  Weight: 125 kg

DRUGS (1)
  1. VOTRIENT [Suspect]
     Active Substance: PAZOPANIB HYDROCHLORIDE
     Indication: RENAL CANCER METASTATIC
     Dosage: 800 MG, QD
     Route: 048
     Dates: start: 20180123, end: 20190208

REACTIONS (2)
  - Second primary malignancy [Recovering/Resolving]
  - Rectal cancer [Fatal]

NARRATIVE: CASE EVENT DATE: 20190122
